FAERS Safety Report 21662319 (Version 5)
Quarter: 2023Q4

REPORT INFORMATION
  Report Type: Report from Study
  Country: LT (occurrence: LT)
  Receive Date: 20221130
  Receipt Date: 20231117
  Transmission Date: 20240110
  Serious: Yes (Other)
  Sender: FDA-Public Use
  Company Number: LT-002147023-NVSC2022LT266163

PATIENT
  Age: 71 Year
  Sex: Female
  Weight: 60 kg

DRUGS (7)
  1. RIBOCICLIB [Suspect]
     Active Substance: RIBOCICLIB
     Indication: Breast cancer female
     Dosage: 200 MG, TID
     Route: 048
     Dates: start: 20221029, end: 20221122
  2. RIBOCICLIB [Suspect]
     Active Substance: RIBOCICLIB
     Indication: Metastases to lung
     Dosage: 400 MG, QD
     Route: 048
  3. RIBOCICLIB [Suspect]
     Active Substance: RIBOCICLIB
     Indication: Metastases to liver
  4. RIBOCICLIB [Suspect]
     Active Substance: RIBOCICLIB
     Indication: Cholangiocarcinoma
  5. RIBOCICLIB [Suspect]
     Active Substance: RIBOCICLIB
     Indication: Metastases to bone
  6. RIBOCICLIB [Suspect]
     Active Substance: RIBOCICLIB
     Indication: Metastases to bone marrow
  7. RIBOCICLIB [Suspect]
     Active Substance: RIBOCICLIB
     Indication: Colon cancer

REACTIONS (4)
  - Electrocardiogram QT prolonged [Unknown]
  - Neutropenia [Unknown]
  - Product use in unapproved indication [Unknown]
  - Inappropriate schedule of product administration [Unknown]

NARRATIVE: CASE EVENT DATE: 20221029
